FAERS Safety Report 5347945-6 (Version None)
Quarter: 2007Q2

REPORT INFORMATION
  Report Type: 
  Country: None (occurrence: None)
  Receive Date: 20070511
  Receipt Date: 20070327
  Transmission Date: 20071010
  Serious: Yes (Other)
  Sender: FDA-Public Use
  Company Number: 35533

PATIENT
  Age: 58 Year
  Sex: Female

DRUGS (7)
  1. CARBOPLATIN [Suspect]
     Indication: OVARIAN CANCER
     Dosage: 260MG/IV
     Route: 042
  2. VIT B-6 [Concomitant]
  3. COMPAZINE SUPPOSITORIES [Concomitant]
  4. HIGH DOSE VITAMIN C [Concomitant]
  5. GEMZAR [Concomitant]
  6. DEXAMETHASONE 0.5MG TAB [Concomitant]
  7. ALOXI [Concomitant]

REACTIONS (3)
  - NAUSEA [None]
  - RHINITIS ALLERGIC [None]
  - VOMITING [None]
